FAERS Safety Report 24748064 (Version 8)
Quarter: 2025Q1

REPORT INFORMATION
  Report Type: Report from Study
  Country: JP (occurrence: JP)
  Receive Date: 20241218
  Receipt Date: 20250304
  Transmission Date: 20250409
  Serious: Yes (Hospitalization)
  Sender: ABBVIE
  Company Number: JP-ABBVIE-5960744

PATIENT
  Age: 74 Year
  Sex: Male
  Weight: 44 kg

DRUGS (9)
  1. VYALEV [Suspect]
     Active Substance: FOSCARBIDOPA\FOSLEVODOPA
     Indication: Parkinson^s disease
     Route: 058
     Dates: start: 20240917
  2. VYALEV [Suspect]
     Active Substance: FOSCARBIDOPA\FOSLEVODOPA
     Route: 058
     Dates: start: 20241106
  3. VYALEV [Suspect]
     Active Substance: FOSCARBIDOPA\FOSLEVODOPA
     Route: 058
     Dates: start: 20250106
  4. VYALEV [Suspect]
     Active Substance: FOSCARBIDOPA\FOSLEVODOPA
     Route: 058
     Dates: start: 20250203
  5. VYALEV [Suspect]
     Active Substance: FOSCARBIDOPA\FOSLEVODOPA
     Route: 058
     Dates: start: 20240924
  6. VYALEV [Suspect]
     Active Substance: FOSCARBIDOPA\FOSLEVODOPA
     Route: 058
     Dates: start: 20241001
  7. OLANZAPINE [Suspect]
     Active Substance: OLANZAPINE
     Indication: Parkinson^s disease
     Route: 048
  8. OPICAPONE [Concomitant]
     Active Substance: OPICAPONE
     Indication: Parkinson^s disease
  9. NEUPRO [Suspect]
     Active Substance: ROTIGOTINE
     Indication: Parkinson^s disease
     Dosage: 9 MILLIGRAM
     Route: 062

REACTIONS (23)
  - Movement disorder [Recovered/Resolved]
  - Illusion [Not Recovered/Not Resolved]
  - Poor quality sleep [Unknown]
  - Discomfort [Unknown]
  - Asthenia [Unknown]
  - Infusion site induration [Unknown]
  - Infusion site reaction [Recovered/Resolved]
  - Infusion site reaction [Not Recovered/Not Resolved]
  - Hallucination [Recovered/Resolved]
  - Infusion site discharge [Unknown]
  - Tremor [Unknown]
  - Nightmare [Not Recovered/Not Resolved]
  - Feeling abnormal [Unknown]
  - Hypokinesia [Unknown]
  - Product prescribing error [Unknown]
  - Infusion site reaction [Unknown]
  - Pyrexia [Recovered/Resolved]
  - Malaise [Recovered/Resolved]
  - Infusion site mass [Unknown]
  - Malaise [Unknown]
  - Infusion site discharge [Unknown]
  - Device issue [Unknown]
  - Infusion site cellulitis [Recovered/Resolved]

NARRATIVE: CASE EVENT DATE: 20240101
